FAERS Safety Report 24263754 (Version 3)
Quarter: 2024Q4

REPORT INFORMATION
  Report Type: Spontaneous
  Country: CA (occurrence: CA)
  Receive Date: 20240829
  Receipt Date: 20241112
  Transmission Date: 20250115
  Serious: Yes (Other)
  Sender: PFIZER
  Company Number: CA-PFIZER INC-202400244971

PATIENT
  Age: 82 Year
  Sex: Male
  Weight: 95.3 kg

DRUGS (6)
  1. RUXIENCE [Suspect]
     Active Substance: RITUXIMAB-PVVR
     Indication: Rheumatoid arthritis
     Dosage: DAY 1 AND DAY 15
     Route: 042
     Dates: start: 20230920, end: 20231004
  2. RUXIENCE [Suspect]
     Active Substance: RITUXIMAB-PVVR
     Dosage: DAY 1 AND DAY 15
     Route: 042
     Dates: start: 20240404, end: 20240418
  3. RUXIENCE [Suspect]
     Active Substance: RITUXIMAB-PVVR
     Dosage: EVERY 2 WEEKS
     Route: 042
     Dates: start: 20241021
  4. RUXIENCE [Suspect]
     Active Substance: RITUXIMAB-PVVR
     Dosage: AFTER 2 WEEKS
     Route: 042
     Dates: start: 20241104, end: 20241104
  5. MIRTAZAPINE [Concomitant]
     Active Substance: MIRTAZAPINE
     Dosage: UNK
  6. PANTOPRAZOLE [Concomitant]
     Active Substance: PANTOPRAZOLE
     Dosage: UNK

REACTIONS (1)
  - Interstitial lung disease [Unknown]
